FAERS Safety Report 17192230 (Version 1)
Quarter: 2019Q4

REPORT INFORMATION
  Report Type: Spontaneous
  Country: CO (occurrence: CO)
  Receive Date: 20191223
  Receipt Date: 20191223
  Transmission Date: 20200122
  Serious: Yes (Other)
  Sender: FDA-Public Use
  Company Number: CO-ASTRAZENECA-2019SF85373

PATIENT
  Age: 56 Year
  Sex: Female

DRUGS (6)
  1. REAMPLA [Suspect]
     Active Substance: PALBOCICLIB
     Indication: BREAST CANCER METASTATIC
     Route: 048
     Dates: start: 20181227
  2. ACETYLSALICYLIC ACID [Concomitant]
     Active Substance: ASPIRIN
     Dosage: 100.0MG UNKNOWN
  3. REAMPLA [Suspect]
     Active Substance: PALBOCICLIB
     Indication: BRAIN CANCER METASTATIC
     Route: 048
     Dates: start: 20181227
  4. FASLODEX [Suspect]
     Active Substance: FULVESTRANT
     Route: 030
     Dates: start: 20181227
  5. REAMPLA [Suspect]
     Active Substance: PALBOCICLIB
     Indication: METASTASES TO LUNG
     Route: 048
     Dates: start: 20181227
  6. REAMPLA [Suspect]
     Active Substance: PALBOCICLIB
     Indication: HEPATIC CANCER METASTATIC
     Route: 048
     Dates: start: 20181227

REACTIONS (10)
  - Cystitis [Unknown]
  - Thermal burn [Not Recovered/Not Resolved]
  - Accident [Unknown]
  - Urine odour abnormal [Unknown]
  - Tibia fracture [Unknown]
  - Alopecia [Unknown]
  - Erythema [Not Recovered/Not Resolved]
  - Gingival swelling [Recovered/Resolved]
  - Urinary retention [Unknown]
  - Vulvovaginal discomfort [Unknown]

NARRATIVE: CASE EVENT DATE: 20190401
